FAERS Safety Report 8941568 (Version 1)
Quarter: 2012Q4

REPORT INFORMATION
  Report Type: 
  Country: US (occurrence: US)
  Receive Date: 20121203
  Receipt Date: 20121203
  Transmission Date: 20130627
  Serious: Yes (Other)
  Sender: FDA-Public Use
  Company Number: US-PFIZER INC-2012301202

PATIENT
  Age: 52 Year
  Sex: Male
  Weight: 88.44 kg

DRUGS (2)
  1. LIPITOR [Suspect]
     Indication: HIGH CHOLESTEROL
     Dosage: 20 mg, once a day
     Route: 048
     Dates: start: 2007, end: 2008
  2. INSULIN [Concomitant]
     Indication: DIABETES
     Dosage: UNK

REACTIONS (3)
  - Arterial occlusive disease [Unknown]
  - Drug intolerance [Unknown]
  - Blood cholesterol decreased [Unknown]
